FAERS Safety Report 19092307 (Version 1)
Quarter: 2021Q2

REPORT INFORMATION
  Report Type: Spontaneous
  Country: PL (occurrence: PL)
  Receive Date: 20210405
  Receipt Date: 20210405
  Transmission Date: 20210717
  Serious: Yes (Other)
  Sender: FDA-Public Use
  Company Number: PL-ACCORD-221301

PATIENT
  Age: 68 Year
  Sex: Female

DRUGS (2)
  1. METHOTREXATE. [Suspect]
     Active Substance: METHOTREXATE
     Indication: MORPHOEA
     Route: 058
  2. METHOTREXATE. [Suspect]
     Active Substance: METHOTREXATE
     Indication: LICHEN SCLEROSUS
     Route: 058

REACTIONS (4)
  - Lichen sclerosus [Recovered/Resolved]
  - Morphoea [Recovered/Resolved]
  - Disease progression [Recovered/Resolved]
  - Off label use [Unknown]
